FAERS Safety Report 15228377 (Version 2)
Quarter: 2018Q3

REPORT INFORMATION
  Report Type: Spontaneous
  Country: US (occurrence: US)
  Receive Date: 20180801
  Receipt Date: 20180808
  Transmission Date: 20181010
  Serious: No
  Sender: FDA-Public Use
  Company Number: US-HORIZON-PEN-0736-2018

PATIENT
  Age: 58 Year
  Sex: Male

DRUGS (5)
  1. PENNSAID [Suspect]
     Active Substance: DICLOFENAC SODIUM
     Indication: OSTEOARTHRITIS
     Dosage: 1 PUMP EVERY 4?6 HOURS AS NEEDED
     Dates: start: 201802
  2. TOPIRAMATE. [Concomitant]
     Active Substance: TOPIRAMATE
  3. NORCO [Concomitant]
     Active Substance: ACETAMINOPHEN\HYDROCODONE BITARTRATE
  4. TIZANIDINE. [Concomitant]
     Active Substance: TIZANIDINE
  5. NAPROXEN. [Concomitant]
     Active Substance: NAPROXEN

REACTIONS (2)
  - Application site exfoliation [Recovered/Resolved]
  - Off label use [Unknown]

NARRATIVE: CASE EVENT DATE: 201803
